FAERS Safety Report 10655582 (Version 1)
Quarter: 2014Q4

REPORT INFORMATION
  Report Type: Spontaneous
  Country: US (occurrence: US)
  Receive Date: 20141216
  Receipt Date: 20141216
  Transmission Date: 20150529
  Serious: Yes (Death)
  Sender: FDA-Public Use
  Company Number: US-INCYTE CORPORATION-2014IN003849

PATIENT
  Age: 62 Year
  Sex: Male

DRUGS (6)
  1. JAKAFI [Suspect]
     Active Substance: RUXOLITINIB
     Dosage: 10 MG, BID
     Route: 048
     Dates: start: 20140503
  2. ALDACTONE [Concomitant]
     Active Substance: SPIRONOLACTONE
  3. DIGOXIN. [Concomitant]
     Active Substance: DIGOXIN
  4. COREG [Concomitant]
     Active Substance: CARVEDILOL
  5. EXJADE [Concomitant]
     Active Substance: DEFERASIROX
  6. AMILORIDE W/HYDROCHLOROTHIAZIDE [Concomitant]
     Active Substance: AMLODIPINE\HYDROCHLOROTHIAZIDE\OLMESARTAN

REACTIONS (1)
  - Death [Fatal]

NARRATIVE: CASE EVENT DATE: 20141127
